FAERS Safety Report 8578672-X (Version None)
Quarter: 2012Q3

REPORT INFORMATION
  Report Type: 
  Country: None (occurrence: None)
  Receive Date: 20120808
  Receipt Date: 20120730
  Transmission Date: 20120928
  Serious: No
  Sender: FDA-Public Use
  Company Number: JP-SANOFI-AVENTIS-2012SA050040

PATIENT
  Age: 84 Year
  Sex: Male

DRUGS (9)
  1. FAMOTIDINE [Concomitant]
     Route: 048
  2. ADALAT [Concomitant]
     Route: 048
  3. MICARDIS [Concomitant]
     Route: 048
  4. PLETAL [Concomitant]
     Route: 048
  5. ASPIRIN [Concomitant]
     Route: 048
  6. BAYCARON [Concomitant]
     Route: 048
  7. ALLOPURINOL [Concomitant]
     Route: 048
  8. PLAVIX [Suspect]
     Route: 048
  9. DEXTRAN SULFATE SODIUM [Concomitant]
     Route: 048

REACTIONS (2)
  - MUSCLE ATROPHY [None]
  - MYALGIA [None]
